FAERS Safety Report 15833826 (Version 3)
Quarter: 2019Q4

REPORT INFORMATION
  Report Type: Spontaneous
  Country: DE (occurrence: DE)
  Receive Date: 20190116
  Receipt Date: 20191004
  Transmission Date: 20200122
  Serious: Yes (Death, Life-Threatening, Hospitalization, Other)
  Sender: FDA-Public Use
  Company Number: DE-MYLANLABS-2019M1002691

PATIENT
  Age: 92 Year
  Sex: Male

DRUGS (13)
  1. RISPERIDONE. [Suspect]
     Active Substance: RISPERIDONE
     Indication: PRODUCT USED FOR UNKNOWN INDICATION
     Dosage: 0.5 MILLIGRAM,DOSAGE FORM: UNSPECIFIED
     Route: 048
     Dates: start: 20171215, end: 20171216
  2. TAMSULOSIN [Concomitant]
     Active Substance: TAMSULOSIN
     Indication: PRODUCT USED FOR UNKNOWN INDICATION
     Dosage: 0.4 MILLIGRAM,DOSAGE FORM: UNSPECIFIED
     Route: 048
     Dates: end: 20180105
  3. RAMIPRIL. [Concomitant]
     Active Substance: RAMIPRIL
     Indication: PRODUCT USED FOR UNKNOWN INDICATION
     Dosage: 10 MILLIGRAM,DOSAGE FORM: UNSPECIFIED
     Route: 048
     Dates: end: 20180105
  4. PRAVASTATIN. [Concomitant]
     Active Substance: PRAVASTATIN
     Indication: LIPIDS INCREASED
     Dosage: 20 MILLIGRAM,DOSAGE FORM: UNSPECIFIED
     Route: 048
     Dates: end: 20180105
  5. RISPERIDONE. [Suspect]
     Active Substance: RISPERIDONE
     Dosage: 1.5 MILLIGRAM,DOSAGE FORM: UNSPECIFIED
     Route: 048
     Dates: start: 20180103, end: 20180105
  6. PANTOPRAZOLE [Concomitant]
     Active Substance: PANTOPRAZOLE
     Indication: PRODUCT USED FOR UNKNOWN INDICATION
     Dosage: 40 MILLIGRAM,DOSAGE FORM: UNSPECIFIED
     Route: 048
     Dates: end: 20180105
  7. TORASEMID [Concomitant]
     Active Substance: TORSEMIDE
     Indication: DIURETIC THERAPY
     Dosage: 5 MILLIGRAM,DOSAGE FORM: UNSPECIFIED
     Route: 048
     Dates: start: 20180103, end: 20180105
  8. AMLODIPINE [Concomitant]
     Active Substance: AMLODIPINE BESYLATE
     Indication: PRODUCT USED FOR UNKNOWN INDICATION
     Dosage: DOSAGE FORM: UNSPECIFIED
     Route: 048
     Dates: end: 20180105
  9. ELIQUIS [Concomitant]
     Active Substance: APIXABAN
     Indication: ANTICOAGULANT THERAPY
     Dosage: 5 MILLIGRAM,DOSAGE FORM: UNSPECIFIED
     Route: 048
     Dates: end: 20180105
  10. RISPERIDONE. [Suspect]
     Active Substance: RISPERIDONE
     Dosage: 2 MILLIGRAM,DOSAGE FORM: UNSPECIFIED
     Route: 048
     Dates: start: 20171217, end: 20180102
  11. TAVOR (LORAZEPAM) [Concomitant]
     Active Substance: LORAZEPAM
     Indication: PRODUCT USED FOR UNKNOWN INDICATION
     Dosage: 2 MILLIGRAM, QD,DOSAGE FORM: UNSPECIFIED
     Route: 065
  12. PIPAMPERONE [Suspect]
     Active Substance: PIPAMPERONE
     Indication: PRODUCT USED FOR UNKNOWN INDICATION
     Dosage: 80 MILLIGRAM,DOSAGE FORM: UNSPECIFIED
     Route: 048
     Dates: start: 20171215, end: 20180105
  13. ALLOPURINOL. [Concomitant]
     Active Substance: ALLOPURINOL
     Indication: GOUT
     Dosage: 150 MILLIGRAM,DOSAGE FORM: UNSPECIFIED
     Route: 048
     Dates: end: 20180105

REACTIONS (3)
  - Immobile [Not Recovered/Not Resolved]
  - Death [Fatal]
  - C-reactive protein increased [Not Recovered/Not Resolved]

NARRATIVE: CASE EVENT DATE: 201712
